FAERS Safety Report 9788911 (Version 1)
Quarter: 2013Q4

REPORT INFORMATION
  Report Type: Spontaneous
  Country: JP (occurrence: JP)
  Receive Date: 20131230
  Receipt Date: 20131230
  Transmission Date: 20140711
  Serious: Yes (Hospitalization)
  Sender: FDA-Public Use
  Company Number: JP-GLAXOSMITHKLINE-B0955710A

PATIENT
  Age: 73 Year
  Sex: Female

DRUGS (1)
  1. LAMICTAL [Suspect]
     Indication: BIPOLAR DISORDER
     Dosage: 50MG PER DAY
     Route: 048
     Dates: start: 201311, end: 20131213

REACTIONS (3)
  - Pancytopenia [Recovered/Resolved]
  - Ocular hyperaemia [Recovered/Resolved]
  - Hepatic function abnormal [Recovered/Resolved]
